FAERS Safety Report 12916590 (Version 2)
Quarter: 2016Q4

REPORT INFORMATION
  Report Type: Spontaneous
  Country: US (occurrence: US)
  Receive Date: 20161107
  Receipt Date: 20161216
  Transmission Date: 20170207
  Serious: No
  Sender: FDA-Public Use
  Company Number: US-009507513-1610USA012135

PATIENT
  Age: 28 Year
  Sex: Female
  Weight: 54.42 kg

DRUGS (3)
  1. NEXPLANON [Suspect]
     Active Substance: ETONOGESTREL
     Dosage: 1 ROD/3 YEARS
     Route: 059
     Dates: start: 20161022
  2. NEXPLANON [Suspect]
     Active Substance: ETONOGESTREL
     Indication: CONTRACEPTION
     Dosage: 1 ROD/3 YEARS
     Route: 059
     Dates: start: 20161012, end: 20161022
  3. LIDOCAINE. [Suspect]
     Active Substance: LIDOCAINE
     Indication: LOCAL ANAESTHESIA
     Dosage: UNK
     Dates: start: 20161012, end: 20161012

REACTIONS (6)
  - Implant site pain [Recovered/Resolved]
  - Implant site swelling [Recovered/Resolved]
  - Device deployment issue [Recovered/Resolved]
  - Migration of implanted drug [Recovered/Resolved]
  - Device expulsion [Recovered/Resolved]
  - Injection site swelling [Recovered/Resolved]

NARRATIVE: CASE EVENT DATE: 201610
